FAERS Safety Report 10881919 (Version 1)
Quarter: 2015Q1

REPORT INFORMATION
  Report Type: Spontaneous
  Country: US (occurrence: None)
  Receive Date: 20150225
  Receipt Date: 20150225
  Transmission Date: 20150721
  Serious: No
  Sender: FDA-Public Use
  Company Number: None

PATIENT
  Age: 23 Year
  Sex: Female

DRUGS (1)
  1. MIRENA [Suspect]
     Active Substance: LEVONORGESTREL
     Dates: start: 20120402, end: 20150202

REACTIONS (12)
  - Hyperhidrosis [None]
  - Palpitations [None]
  - Sleep disorder [None]
  - Hormone level abnormal [None]
  - Inflammation [None]
  - Embedded device [None]
  - Pain [None]
  - Alopecia [None]
  - Scar [None]
  - Depression [None]
  - Anxiety [None]
  - Device dislocation [None]

NARRATIVE: CASE EVENT DATE: 20150202
